FAERS Safety Report 11468965 (Version 1)
Quarter: 2015Q3

REPORT INFORMATION
  Report Type: Spontaneous
  Country: FR (occurrence: FR)
  Receive Date: 20150908
  Receipt Date: 20150908
  Transmission Date: 20151125
  Serious: Yes (Death, Life-Threatening, Hospitalization)
  Sender: FDA-Public Use
  Company Number: FR-ACTELION-A-CH2015-123227

PATIENT
  Age: 83 Year
  Sex: Female

DRUGS (2)
  1. TRACLEER [Suspect]
     Active Substance: BOSENTAN
     Indication: PULMONARY HYPERTENSION
     Dosage: 125 MG, BID
     Route: 048
  2. RIOCIGUAT [Suspect]
     Active Substance: RIOCIGUAT
     Indication: PULMONARY HYPERTENSION
     Dosage: 1 MG, TID
     Route: 048
     Dates: start: 20141101, end: 20150125

REACTIONS (16)
  - Sepsis [Unknown]
  - General physical health deterioration [Fatal]
  - Coma [Fatal]
  - Feeding disorder [Fatal]
  - Right ventricular failure [Fatal]
  - Disease progression [Fatal]
  - Pyrexia [Unknown]
  - Staphylococcus test positive [Unknown]
  - C-reactive protein increased [Unknown]
  - Respiratory distress [Fatal]
  - Confusional state [Unknown]
  - Venous pressure jugular increased [Fatal]
  - Pulmonary hypertension [Fatal]
  - Hypotension [Unknown]
  - Blood creatinine increased [Fatal]
  - Blood potassium abnormal [Fatal]

NARRATIVE: CASE EVENT DATE: 20150117
